FAERS Safety Report 10410371 (Version 1)
Quarter: 2014Q3

REPORT INFORMATION
  Report Type: Spontaneous
  Country: BR (occurrence: BR)
  Receive Date: 20140826
  Receipt Date: 20140826
  Transmission Date: 20150326
  Serious: Yes (Other)
  Sender: FDA-Public Use
  Company Number: BR-PFIZER INC-2014231715

PATIENT
  Age: 70 Year
  Sex: Female
  Weight: 73 kg

DRUGS (6)
  1. HYDROCHLOROTHIAZIDE. [Concomitant]
     Active Substance: HYDROCHLOROTHIAZIDE
     Indication: HYPERTENSION
     Dosage: UNK, ONCE A DAY IN THE MORNING
     Dates: start: 2009
  2. ARTRODAR [Concomitant]
     Active Substance: DIACEREIN
     Indication: OSTEOARTHRITIS
     Dosage: 50 MG, 2X/DAY
     Dates: start: 201407
  3. FLAVONID [Concomitant]
     Indication: VARICOSE VEIN
     Dosage: ONE CAPSULE/TABLET (UNSPECIFIED FORMULATION) PER DAY
     Dates: start: 2013
  4. LOSARTAN POTASSIUM. [Concomitant]
     Active Substance: LOSARTAN POTASSIUM
     Indication: HYPERTENSION
     Dosage: UNK AT TWICE A DAY
     Dates: start: 2009
  5. LYRICA [Suspect]
     Active Substance: PREGABALIN
     Indication: BACK PAIN
     Dosage: 75 MG (ONE CAPSULE), 3X/DAY
     Route: 048
     Dates: start: 20120819
  6. SIMVASTATIN. [Concomitant]
     Active Substance: SIMVASTATIN
     Indication: BLOOD CHOLESTEROL
     Dosage: ONE CAPSULE/TABLET (UNSPECIFIED FORMULATION) OF 20 MG PER DAY
     Dates: start: 2009

REACTIONS (2)
  - Spinal disorder [Unknown]
  - Drug ineffective [Not Recovered/Not Resolved]

NARRATIVE: CASE EVENT DATE: 201212
